FAERS Safety Report 7240462-8 (Version None)
Quarter: 2011Q1

REPORT INFORMATION
  Report Type: 
  Country: None (occurrence: None)
  Receive Date: 20110124
  Receipt Date: 20110114
  Transmission Date: 20110831
  Serious: No
  Sender: FDA-Public Use
  Company Number: US-PFIZER INC-2011012874

PATIENT
  Sex: Female

DRUGS (3)
  1. XANAX [Concomitant]
  2. IBUPROFEN [Concomitant]
  3. PREMARIN [Suspect]
     Dosage: 2.0 G OINTMENT ONCE DAILY
     Route: 067
     Dates: start: 20110113

REACTIONS (2)
  - APPLICATION SITE PAIN [None]
  - INCORRECT DOSE ADMINISTERED [None]
